FAERS Safety Report 18164787 (Version 1)
Quarter: 2020Q3

REPORT INFORMATION
  Report Type: Spontaneous
  Country: FR (occurrence: FR)
  Receive Date: 20200818
  Receipt Date: 20200818
  Transmission Date: 20201103
  Serious: Yes (Other)
  Sender: FDA-Public Use
  Company Number: NVSC2020FR226536

PATIENT
  Age: 34 Year
  Sex: Female

DRUGS (4)
  1. CABERGOLINE. [Interacting]
     Active Substance: CABERGOLINE
     Indication: PROLACTIN-PRODUCING PITUITARY TUMOUR
     Dosage: 2 MG, QW
     Route: 065
  2. OLANZAPINE. [Suspect]
     Active Substance: OLANZAPINE
     Indication: PSYCHOTIC DISORDER
     Dosage: UNK
     Route: 065
  3. LEVOMEPROMAZINE [Interacting]
     Active Substance: LEVOMEPROMAZINE
     Indication: PSYCHOTIC DISORDER
     Dosage: UNK
     Route: 065
  4. HALOPERIDOL. [Interacting]
     Active Substance: HALOPERIDOL
     Indication: PSYCHOTIC DISORDER
     Dosage: UNK
     Route: 065

REACTIONS (2)
  - Therapeutic product effect decreased [Unknown]
  - Drug interaction [Unknown]
